FAERS Safety Report 9010677 (Version 2)
Quarter: 2013Q1

REPORT INFORMATION
  Report Type: Report from Study
  Country: US (occurrence: US)
  Receive Date: 20130109
  Receipt Date: 20130122
  Transmission Date: 20140127
  Serious: Yes (Hospitalization, Other)
  Sender: FDA-Public Use
  Company Number: US-PFIZER INC-2013003875

PATIENT
  Age: 43 Year
  Sex: Female
  Weight: 55 kg

DRUGS (19)
  1. REVATIO [Suspect]
     Indication: PRODUCT USED FOR UNKNOWN INDICATION
     Dosage: 20 MG, 3X/DAY
     Dates: end: 20121204
  2. REVATIO [Suspect]
     Indication: PULMONARY ARTERIAL HYPERTENSION
     Dosage: 20 MG, 3X/DAY
     Dates: start: 20121206, end: 20121211
  3. CIPRO [Suspect]
     Dosage: UNK
     Dates: end: 20121211
  4. CEFALEXIN [Suspect]
     Indication: PRODUCT USED FOR UNKNOWN INDICATION
     Dosage: UNK
  5. REMODULIN [Suspect]
     Indication: COR PULMONALE CHRONIC
     Dosage: 115.2 UG/KG, (0.08 UG/KG, 1 IN 1 MIN)
     Route: 058
     Dates: start: 20110713
  6. REMODULIN [Suspect]
     Indication: PULMONARY HYPERTENSION
  7. ASCORBIC ACID [Concomitant]
  8. HYDROXYZINE [Concomitant]
     Indication: PRURITUS
     Dosage: 50MG (2 TABLETS), 4X/DAY AS NEEDED
     Route: 048
  9. HYDROXYCHLOROQUINE [Concomitant]
     Dosage: 200 MG, EVERY DAY
     Route: 048
  10. PREDNISONE [Concomitant]
     Dosage: 5 MG, UNK
  11. COUMADIN [Concomitant]
     Indication: PULMONARY HYPERTENSION
     Dosage: 4 MG, DAILY
  12. TRICOR [Concomitant]
  13. ACETAMINOPHEN [Concomitant]
  14. HYDROCODONE [Concomitant]
  15. FOLIC ACID [Concomitant]
  16. CYANOCOBALAMIN [Concomitant]
  17. CALCIUM WITH VITAMIN D [Concomitant]
  18. NORCO [Concomitant]
     Dosage: UNK
  19. AMBIEN [Concomitant]
     Dosage: AS NEEDED AT BEDTIME

REACTIONS (4)
  - Drug hypersensitivity [Recovered/Resolved]
  - Toxic skin eruption [Unknown]
  - Flushing [Unknown]
  - Lip swelling [Unknown]
